FAERS Safety Report 9960992 (Version 2)
Quarter: 2014Q1

REPORT INFORMATION
  Report Type: Spontaneous
  Country: US (occurrence: US)
  Receive Date: 20140305
  Receipt Date: 20140325
  Transmission Date: 20141002
  Serious: No
  Sender: FDA-Public Use
  Company Number: US-ROXANE LABORATORIES, INC.-2014-RO-00327RO

PATIENT
  Sex: Male

DRUGS (2)
  1. PREDNISONE [Suspect]
     Indication: POLYMYALGIA RHEUMATICA
     Dosage: 20 MG
     Route: 048
  2. PREDNISONE [Suspect]
     Indication: TEMPORAL ARTERITIS

REACTIONS (3)
  - Vision blurred [Unknown]
  - Headache [Unknown]
  - Product quality issue [Unknown]
